FAERS Safety Report 4849326-8 (Version None)
Quarter: 2005Q4

REPORT INFORMATION
  Report Type: 
  Country: None (occurrence: None)
  Receive Date: 20051209
  Receipt Date: 20051124
  Transmission Date: 20060501
  Serious: Yes (Hospitalization)
  Sender: FDA-Public Use
  Company Number: HQWYE725629NOV05

PATIENT
  Sex: Female

DRUGS (3)
  1. ENBREL [Suspect]
     Indication: RHEUMATOID ARTHRITIS
     Route: 058
     Dates: start: 20050614, end: 20050814
  2. RHEUMATREX [Suspect]
     Dosage: UNKNOWN
     Route: 048
  3. BUCILLAMINE [Concomitant]
     Dosage: UNKNOWN, TAB
     Route: 048

REACTIONS (1)
  - PULPITIS DENTAL [None]
